FAERS Safety Report 9122774 (Version 2)
Quarter: 2013Q1

REPORT INFORMATION
  Report Type: Report from Study
  Country: HK (occurrence: HK)
  Receive Date: 20130227
  Receipt Date: 20130321
  Transmission Date: 20140127
  Serious: Yes (Hospitalization)
  Sender: FDA-Public Use
  Company Number: HK-EISAI INC-E2007-00704-CLI-HK

PATIENT
  Age: 33 Year
  Sex: Male
  Weight: 80 kg

DRUGS (9)
  1. E2007 (PERAMPANEL) [Suspect]
     Indication: PARTIAL SEIZURES
     Dosage: DOUBLE BLIND CONVERSION PERIOD
     Route: 048
     Dates: start: 20100415, end: 20100627
  2. E2007 (PERAMPANEL) [Suspect]
     Dosage: DOUBLE BLIND-CONVERSION PERIOD
     Route: 048
     Dates: start: 20100628, end: 20100721
  3. LAMOTRIGINE [Concomitant]
     Indication: EPILEPSY
     Route: 048
     Dates: start: 20070620
  4. TOPIRAMATE [Concomitant]
     Indication: EPILEPSY
     Route: 048
     Dates: start: 20040518, end: 20100728
  5. TOPIRAMATE [Concomitant]
     Route: 048
     Dates: start: 20100729
  6. NIFEDIPINE [Concomitant]
     Indication: HYPERTENSION
     Route: 048
     Dates: start: 20090401
  7. ATENOLOL [Concomitant]
     Indication: HYPERTENSION
     Route: 048
     Dates: start: 20091130
  8. CROTAMITON CREAM [Concomitant]
     Indication: DERMATITIS
     Dosage: 1 APP
     Route: 061
     Dates: start: 20100310
  9. ANUSOL SUPPOSITORY [Concomitant]
     Indication: HAEMORRHOIDS
     Dosage: 1 TAB
     Route: 054
     Dates: start: 20100602

REACTIONS (2)
  - Psychotic disorder [Recovering/Resolving]
  - Drug ineffective [Unknown]
